FAERS Safety Report 24997623 (Version 1)
Quarter: 2025Q1

REPORT INFORMATION
  Report Type: Report from Study
  Country: US (occurrence: US)
  Receive Date: 20250222
  Receipt Date: 20250222
  Transmission Date: 20250408
  Serious: Yes (Hospitalization, Other)
  Sender: AMGEN
  Company Number: US-AMGEN-USASL2023212302

PATIENT
  Age: 34 Year
  Sex: Female

DRUGS (5)
  1. CORLANOR [Suspect]
     Active Substance: IVABRADINE HYDROCHLORIDE
     Indication: Blood cholesterol abnormal
     Dosage: 5 MILLIGRAM, QD (A DAY)
     Route: 065
     Dates: start: 202202
  2. CORLANOR [Suspect]
     Active Substance: IVABRADINE HYDROCHLORIDE
     Indication: Arrhythmia
     Route: 065
     Dates: start: 202202
  3. CORLANOR [Suspect]
     Active Substance: IVABRADINE HYDROCHLORIDE
     Indication: Off label use
     Dosage: 2.5 MILLIGRAM, BID
     Route: 065
  4. TYLENOL [Concomitant]
     Active Substance: ACETAMINOPHEN
     Route: 065
  5. FLONASE [Concomitant]
     Active Substance: FLUTICASONE PROPIONATE
     Route: 065

REACTIONS (17)
  - Postural orthostatic tachycardia syndrome [Unknown]
  - Ventricular extrasystoles [Unknown]
  - Supraventricular tachycardia [Unknown]
  - Supraventricular extrasystoles [Unknown]
  - Atrial tachycardia [Unknown]
  - Sinus tachycardia [Unknown]
  - Weight increased [Recovering/Resolving]
  - Heart rate increased [Unknown]
  - Tachycardia [Unknown]
  - Ventricular tachycardia [Unknown]
  - Fluid retention [Unknown]
  - Oedema [Unknown]
  - Headache [Recovered/Resolved]
  - Intentional product misuse [Unknown]
  - Weight decreased [Unknown]
  - Off label use [Unknown]
  - Visual impairment [Recovered/Resolved]

NARRATIVE: CASE EVENT DATE: 20220101
